FAERS Safety Report 23440389 (Version 12)
Quarter: 2025Q1

REPORT INFORMATION
  Report Type: Spontaneous
  Country: US (occurrence: US)
  Receive Date: 20240124
  Receipt Date: 20250205
  Transmission Date: 20250409
  Serious: Yes (Hospitalization)
  Sender: BIOGEN
  Company Number: US-BIOGEN-2024BI01246948

PATIENT
  Age: 32 Year
  Sex: Male
  Weight: 79.473 kg

DRUGS (7)
  1. SKYCLARYS [Suspect]
     Active Substance: OMAVELOXOLONE
     Indication: Friedreich^s ataxia
     Route: 050
     Dates: start: 20231228
  2. SKYCLARYS [Suspect]
     Active Substance: OMAVELOXOLONE
     Route: 050
  3. SKYCLARYS [Suspect]
     Active Substance: OMAVELOXOLONE
     Route: 050
     Dates: start: 20231227
  4. SKYCLARYS [Suspect]
     Active Substance: OMAVELOXOLONE
     Route: 050
     Dates: start: 20240615
  5. SKYCLARYS [Suspect]
     Active Substance: OMAVELOXOLONE
     Route: 050
     Dates: start: 20231228
  6. SKYCLARYS [Suspect]
     Active Substance: OMAVELOXOLONE
     Dosage: NOW TAKES 1 CAPSULE A DAY INSTEAD OF 2 AS PRESCRIBED BY THE DOCTOR
     Route: 050
     Dates: start: 20231228
  7. SKYCLARYS [Suspect]
     Active Substance: OMAVELOXOLONE
     Dosage: 2 PILLS PER DAY
     Route: 050

REACTIONS (12)
  - Abdominal pain [Unknown]
  - Product dose omission issue [Unknown]
  - Cystitis [Unknown]
  - Chest pain [Unknown]
  - Pain in extremity [Unknown]
  - Gastrointestinal disorder [Unknown]
  - Dizziness [Unknown]
  - COVID-19 [Unknown]
  - Pain [Unknown]
  - Headache [Unknown]
  - Blood cholesterol increased [Unknown]
  - Muscle spasms [Unknown]

NARRATIVE: CASE EVENT DATE: 20240101
